FAERS Safety Report 14455250 (Version 1)
Quarter: 2018Q1

REPORT INFORMATION
  Report Type: Spontaneous
  Country: US (occurrence: US)
  Receive Date: 20180129
  Receipt Date: 20180129
  Transmission Date: 20180509
  Serious: No
  Sender: FDA-Public Use
  Company Number: US-WOCKHARDT USA, LLC-2040983

PATIENT

DRUGS (1)
  1. CARBIDOPA, LEVODOPA + ENTACAPONE [Suspect]
     Active Substance: CARBIDOPA\ENTACAPONE\LEVODOPA

REACTIONS (5)
  - Hypersomnia [Unknown]
  - Confusional state [Unknown]
  - Delusion [Unknown]
  - Hallucination [Unknown]
  - Incontinence [Unknown]
